FAERS Safety Report 4741512-0 (Version None)
Quarter: 2005Q3

REPORT INFORMATION
  Report Type: 
  Country: None (occurrence: None)
  Receive Date: 20050808
  Receipt Date: 20050729
  Transmission Date: 20060218
  Serious: Yes (Hospitalization)
  Sender: FDA-Public Use
  Company Number: 11950

PATIENT
  Age: 88 Year
  Sex: Male

DRUGS (5)
  1. ACYCLOVIR [Suspect]
     Indication: HERPES ZOSTER
     Dosage: PO
     Route: 048
     Dates: start: 20050707, end: 20050708
  2. AMOXICILLIN [Concomitant]
  3. PARACETAMOL [Concomitant]
  4. PERINDOPRIL [Concomitant]
  5. DOXYCYCLINE [Concomitant]

REACTIONS (2)
  - BICYTOPENIA [None]
  - NEUTROPENIA [None]
